FAERS Safety Report 20064835 (Version 1)
Quarter: 2021Q4

REPORT INFORMATION
  Report Type: Report from Study
  Country: CO (occurrence: CO)
  Receive Date: 20211112
  Receipt Date: 20211112
  Transmission Date: 20220303
  Serious: Yes (Hospitalization)
  Sender: FDA-Public Use
  Company Number: CO-JNJFOC-20211016439

PATIENT
  Age: 60 Year
  Sex: Male
  Weight: 66 kg

DRUGS (2)
  1. IMBRUVICA [Suspect]
     Active Substance: IBRUTINIB
     Indication: Chronic lymphocytic leukaemia
     Route: 048
     Dates: start: 20210612
  2. LOSARTAN [Concomitant]
     Active Substance: LOSARTAN
     Indication: Product used for unknown indication
     Route: 065

REACTIONS (5)
  - Asphyxia [Recovering/Resolving]
  - Unevaluable event [Recovering/Resolving]
  - Skin discolouration [Recovering/Resolving]
  - Pyrexia [Not Recovered/Not Resolved]
  - Dizziness [Recovering/Resolving]

NARRATIVE: CASE EVENT DATE: 20210901
